FAERS Safety Report 4371932-8 (Version None)
Quarter: 2004Q2

REPORT INFORMATION
  Report Type: 
  Country: None (occurrence: None)
  Receive Date: 20040602
  Receipt Date: 20040518
  Transmission Date: 20050107
  Serious: Yes (Hospitalization)
  Sender: FDA-Public Use
  Company Number: US-JNJFOC-20031203169

PATIENT
  Age: 58 Year
  Sex: Male

DRUGS (11)
  1. NIFLIXIMAB RECOMBINANT (INFLIXIMAB, RECOMBINANT) LYOPHILIZED POWDER [Suspect]
     Indication: CHRONIC OBSTRUCTIVE AIRWAYS DISEASE
     Dosage: 3 MG/KG, INTRAVENOUS
     Route: 042
     Dates: start: 20030911
  2. NIFLIXIMAB RECOMBINANT (INFLIXIMAB, RECOMBINANT) LYOPHILIZED POWDER [Suspect]
     Indication: CHRONIC OBSTRUCTIVE AIRWAYS DISEASE
     Dosage: 3 MG/KG, INTRAVENOUS
     Route: 042
     Dates: start: 20030924
  3. NIFLIXIMAB RECOMBINANT (INFLIXIMAB, RECOMBINANT) LYOPHILIZED POWDER [Suspect]
     Indication: CHRONIC OBSTRUCTIVE AIRWAYS DISEASE
     Dosage: 3 MG/KG, INTRAVENOUS
     Route: 042
     Dates: start: 20031105
  4. ADVAIR (SERETIDE MITE) [Concomitant]
  5. ALBUTEROL [Concomitant]
  6. ATROVENT [Concomitant]
  7. DAYQUIL (VICKS FORMULA 44M) [Concomitant]
  8. MULTIVITAMIN (MULTIVITAMINS) [Concomitant]
  9. VITAMIN C (ASCORBIC ACID) [Concomitant]
  10. ASPIRIN [Concomitant]
  11. COENZYME (COENZYME A) [Concomitant]

REACTIONS (3)
  - DEHYDRATION [None]
  - INTRACRANIAL VENOUS SINUS THROMBOSIS [None]
  - MENINGITIS PNEUMOCOCCAL [None]
